FAERS Safety Report 11483199 (Version 1)
Quarter: 2015Q3

REPORT INFORMATION
  Report Type: Spontaneous
  Country: US (occurrence: US)
  Receive Date: 20150903
  Receipt Date: 20150903
  Transmission Date: 20151125
  Serious: No
  Sender: FDA-Public Use
  Company Number: US-ELI_LILLY_AND_COMPANY-US201205010625

PATIENT
  Age: 44 Year
  Sex: Female

DRUGS (5)
  1. CYMBALTA [Suspect]
     Active Substance: DULOXETINE HYDROCHLORIDE
     Dosage: 60MG, DAILY
  2. CYMBALTA [Suspect]
     Active Substance: DULOXETINE HYDROCHLORIDE
     Indication: DEPRESSION
     Dosage: 90MG, DAILY
  3. CYMBALTA [Suspect]
     Active Substance: DULOXETINE HYDROCHLORIDE
     Dosage: 30MG, DAILY
  4. CYMBALTA [Suspect]
     Active Substance: DULOXETINE HYDROCHLORIDE
     Dosage: 20MG, DAILY
  5. CYMBALTA [Suspect]
     Active Substance: DULOXETINE HYDROCHLORIDE
     Dosage: 20MG, EVERY OTHER DAY

REACTIONS (8)
  - Hyperhidrosis [Unknown]
  - Dysarthria [Unknown]
  - Anger [Unknown]
  - Sleep disorder [Unknown]
  - Weight increased [Unknown]
  - Drug withdrawal syndrome [Unknown]
  - Headache [Unknown]
  - Formication [Unknown]
